FAERS Safety Report 12971426 (Version 1)
Quarter: 2016Q4

REPORT INFORMATION
  Report Type: Spontaneous
  Country: US (occurrence: US)
  Receive Date: 20161123
  Receipt Date: 20161123
  Transmission Date: 20170207
  Serious: No
  Sender: FDA-Public Use
  Company Number: US-JAZZ-2016-US-019928

PATIENT
  Sex: Female

DRUGS (19)
  1. RANITIDINE. [Concomitant]
     Active Substance: RANITIDINE
  2. VITAMIN D [Concomitant]
     Active Substance: CHOLECALCIFEROL
  3. PROBIOTIC COMPLEX [Concomitant]
  4. XYREM [Suspect]
     Active Substance: SODIUM OXYBATE
     Indication: SLEEP DISORDER
     Dosage: 2.25 G, BID
     Route: 048
     Dates: start: 201404, end: 2014
  5. XYREM [Suspect]
     Active Substance: SODIUM OXYBATE
     Dosage: 3.75 G,BID
     Route: 048
     Dates: start: 201601, end: 2016
  6. MAGNESIUM                          /01066801/ [Concomitant]
  7. VITAMIN C [Concomitant]
     Active Substance: ASCORBIC ACID
  8. XYREM [Suspect]
     Active Substance: SODIUM OXYBATE
     Dosage: DOSE ADJUSTMENT
     Route: 048
     Dates: start: 201405, end: 2015
  9. MIGRELIEF [Concomitant]
  10. MULTIVITAMINS                      /07504101/ [Concomitant]
  11. EFFEXOR [Concomitant]
     Active Substance: VENLAFAXINE HYDROCHLORIDE
  12. VENLAFAXINE [Concomitant]
     Active Substance: VENLAFAXINE HYDROCHLORIDE
  13. VITAMIN B COMPLEX [Concomitant]
     Active Substance: CYANOCOBALAMIN\DEXPANTHENOL\NIACINAMIDE\PYRIDOXINE HYDROCHLORIDE\RIBOFLAVIN 5^-PHOSPHATE SODIUM\THIAMINE HYDROCHLORIDE\VITAMIN B COMPLEX
  14. ORTHO TRI CYCLEN LO [Concomitant]
     Active Substance: ETHINYL ESTRADIOL\NORGESTIMATE
  15. FISH OIL [Concomitant]
     Active Substance: FISH OIL
  16. COENZYME Q10 [Concomitant]
     Active Substance: UBIDECARENONE
  17. VENLAFAXINE                        /01233802/ [Concomitant]
     Active Substance: VENLAFAXINE HYDROCHLORIDE
  18. L-THREONINE [Concomitant]
  19. IBUPROFEN. [Concomitant]
     Active Substance: IBUPROFEN

REACTIONS (1)
  - Drug dose omission [Unknown]
